FAERS Safety Report 5293625-5 (Version None)
Quarter: 2007Q2

REPORT INFORMATION
  Report Type: 
  Country: None (occurrence: None)
  Receive Date: 20070411
  Receipt Date: 20070404
  Transmission Date: 20071010
  Serious: Yes (Other)
  Sender: FDA-Public Use
  Company Number: US-BOEHRINGER INGELHEIM PHARMACEUTICALS, INC.-2007-BP-04823PF

PATIENT
  Sex: Female
  Weight: 61 kg

DRUGS (9)
  1. SPIRIVA [Suspect]
     Indication: DRUG USE FOR UNKNOWN INDICATION
     Route: 055
     Dates: start: 20070119
  2. LASIX [Concomitant]
  3. GEODON [Concomitant]
  4. DIAZEPAM [Concomitant]
  5. 'HYDROCOD/APAP' [Concomitant]
  6. BETHANECHOL [Concomitant]
  7. GABAPENTIN [Concomitant]
  8. ZOLOFT [Concomitant]
  9. CHANTIX [Concomitant]
     Dates: start: 20070119

REACTIONS (9)
  - CHRONIC OBSTRUCTIVE PULMONARY DISEASE [None]
  - EATING DISORDER [None]
  - FEELING ABNORMAL [None]
  - FLUID RETENTION [None]
  - MOBILITY DECREASED [None]
  - SLEEP DISORDER [None]
  - SWELLING [None]
  - THERAPEUTIC PRODUCT INEFFECTIVE [None]
  - WEIGHT INCREASED [None]
